FAERS Safety Report 7180398-4 (Version None)
Quarter: 2010Q4

REPORT INFORMATION
  Report Type: 
  Country: None (occurrence: None)
  Receive Date: 20101221
  Receipt Date: 20101215
  Transmission Date: 20110411
  Serious: Yes (Other)
  Sender: FDA-Public Use
  Company Number: B0685146A

PATIENT
  Age: 48 Year
  Sex: Female

DRUGS (4)
  1. SEROXAT [Suspect]
     Indication: DEPRESSION
     Dosage: 20MG PER DAY
     Route: 048
     Dates: start: 20100618, end: 20100901
  2. CIPRAMIL [Concomitant]
     Route: 048
     Dates: start: 20060824
  3. INOSINE [Concomitant]
     Route: 065
     Dates: start: 20060824
  4. ALPRAZOLAM [Concomitant]
     Route: 065
     Dates: start: 20060824

REACTIONS (2)
  - HAEMOPTYSIS [None]
  - HAEMORRHAGIC DISORDER [None]
